FAERS Safety Report 5639769-7 (Version None)
Quarter: 2008Q1

REPORT INFORMATION
  Report Type: 
  Country: None (occurrence: None)
  Receive Date: 20080225
  Receipt Date: 20080220
  Transmission Date: 20080703
  Serious: Yes (Other)
  Sender: FDA-Public Use
  Company Number: B0509030A

PATIENT
  Sex: Female

DRUGS (5)
  1. ZINACEF [Suspect]
     Indication: DRUG USE FOR UNKNOWN INDICATION
     Dates: start: 20080204, end: 20080209
  2. STATINS [Concomitant]
  3. CELECOXIB [Concomitant]
  4. BENDROFLUAZIDE [Concomitant]
  5. ATENOLOL [Concomitant]

REACTIONS (1)
  - JAUNDICE CHOLESTATIC [None]
